FAERS Safety Report 16483057 (Version 1)
Quarter: 2019Q2

REPORT INFORMATION
  Report Type: Spontaneous
  Country: GB (occurrence: GB)
  Receive Date: 20190627
  Receipt Date: 20190627
  Transmission Date: 20190711
  Serious: Yes (Hospitalization)
  Sender: FDA-Public Use
  Company Number: PHHY2019GB145483

PATIENT
  Age: 78 Year
  Sex: Female

DRUGS (1)
  1. NYSTATIN. [Suspect]
     Active Substance: NYSTATIN
     Indication: ORAL CANDIDIASIS
     Dosage: AS PER BRITISH NATIONAL FORMULARY
     Route: 065

REACTIONS (2)
  - Oral mucosal blistering [Unknown]
  - Swelling face [Unknown]
